FAERS Safety Report 8343242-5 (Version None)
Quarter: 2012Q2

REPORT INFORMATION
  Report Type: 
  Country: None (occurrence: None)
  Receive Date: 20120503
  Receipt Date: 20120423
  Transmission Date: 20120825
  Serious: Yes (Other)
  Sender: FDA-Public Use
  Company Number: 2012SP021647

PATIENT
  Sex: Male

DRUGS (5)
  1. PROZAC [Concomitant]
  2. VICTRELIS [Suspect]
     Indication: HEPATITIS C
     Dates: start: 20120221
  3. LEXAPRO [Concomitant]
  4. PEG-INTRON [Suspect]
     Indication: HEPATITIS C
     Dates: start: 20120124
  5. RIBAVIRIN [Suspect]
     Indication: HEPATITIS C
     Dates: start: 20120124

REACTIONS (11)
  - ABDOMINAL DISCOMFORT [None]
  - IRRITABILITY [None]
  - NAUSEA [None]
  - AGITATION [None]
  - SUICIDAL IDEATION [None]
  - HYPERHIDROSIS [None]
  - CHILLS [None]
  - ANGER [None]
  - INFLUENZA LIKE ILLNESS [None]
  - ABDOMINAL PAIN UPPER [None]
  - HOMICIDAL IDEATION [None]
